FAERS Safety Report 7115307-7 (Version None)
Quarter: 2010Q4

REPORT INFORMATION
  Report Type: 
  Country: None (occurrence: None)
  Receive Date: 20101122
  Receipt Date: 20101116
  Transmission Date: 20110411
  Serious: Yes (Death, Hospitalization)
  Sender: FDA-Public Use
  Company Number: BE-SANOFI-AVENTIS-2010SA064781

PATIENT
  Age: 78 Year
  Sex: Female

DRUGS (11)
  1. DOCETAXEL [Suspect]
     Indication: BREAST CANCER
     Route: 041
     Dates: start: 20101007, end: 20101007
  2. TRASTUZUMAB [Suspect]
     Indication: BREAST CANCER
     Dates: start: 20101007, end: 20101007
  3. ASAFLOW [Concomitant]
  4. AVANDIA [Concomitant]
  5. CALCIUM [Concomitant]
  6. BISOPROLOL FUMARATE [Concomitant]
  7. ROSUVASTATIN CALCIUM [Concomitant]
  8. THYROXIN [Concomitant]
  9. METFORMAX [Concomitant]
  10. PANTOPRAZOLE [Concomitant]
  11. TRADONAL [Concomitant]

REACTIONS (5)
  - DISSEMINATED INTRAVASCULAR COAGULATION [None]
  - ENTEROCOLITIS [None]
  - INTESTINAL ISCHAEMIA [None]
  - MULTI-ORGAN FAILURE [None]
  - SEPTIC SHOCK [None]
